FAERS Safety Report 19916529 (Version 1)
Quarter: 2021Q4

REPORT INFORMATION
  Report Type: Spontaneous
  Country: US (occurrence: US)
  Receive Date: 20211004
  Receipt Date: 20211004
  Transmission Date: 20220303
  Serious: Yes (Hospitalization)
  Sender: FDA-Public Use
  Company Number: None

PATIENT
  Sex: Female

DRUGS (5)
  1. HUMIRA [Suspect]
     Active Substance: ADALIMUMAB
     Dosage: ?          OTHER FREQUENCY:EVERY 14 DAYS;
     Route: 058
     Dates: start: 20210128
  2. CELEXA [Concomitant]
     Active Substance: CITALOPRAM HYDROBROMIDE
  3. FOLIC ACID [Concomitant]
     Active Substance: FOLIC ACID
  4. VITAMIN A [Concomitant]
     Active Substance: VITAMIN A
  5. SPIRONOLACTONE [Concomitant]
     Active Substance: SPIRONOLACTONE

REACTIONS (3)
  - Kidney infection [None]
  - Escherichia infection [None]
  - Intentional dose omission [None]
